FAERS Safety Report 14922410 (Version 5)
Quarter: 2020Q4

REPORT INFORMATION
  Report Type: Spontaneous
  Country: US (occurrence: US)
  Receive Date: 20180522
  Receipt Date: 20201102
  Transmission Date: 20210113
  Serious: Yes (Other)
  Sender: FDA-Public Use
  Company Number: US-PFIZER INC-2018045930

PATIENT
  Age: 50 Year
  Sex: Female

DRUGS (3)
  1. GENOTROPIN [Suspect]
     Active Substance: SOMATROPIN
     Dosage: 3.6 MG, DAILY
     Dates: end: 2014
  2. GENOTROPIN [Suspect]
     Active Substance: SOMATROPIN
     Dosage: UNK
     Dates: start: 2004, end: 2014
  3. GENOTROPIN [Suspect]
     Active Substance: SOMATROPIN
     Indication: PITUITARY TUMOUR BENIGN
     Dosage: 3.6 MG, DAILY
     Dates: end: 2014

REACTIONS (16)
  - Product use in unapproved indication [Unknown]
  - Eye disorder [Not Recovered/Not Resolved]
  - Fat tissue increased [Unknown]
  - Hypotonia [Unknown]
  - Off label use [Unknown]
  - Lipohypertrophy [Recovered/Resolved]
  - Impaired quality of life [Unknown]
  - Skin striae [Not Recovered/Not Resolved]
  - Malaise [Unknown]
  - Feeling abnormal [Unknown]
  - Skin discolouration [Unknown]
  - Skin disorder [Not Recovered/Not Resolved]
  - Bone pain [Unknown]
  - Weight increased [Not Recovered/Not Resolved]
  - Injection site mass [Not Recovered/Not Resolved]
  - Blood cholesterol increased [Unknown]

NARRATIVE: CASE EVENT DATE: 2004
